FAERS Safety Report 6444017-4 (Version None)
Quarter: 2009Q4

REPORT INFORMATION
  Report Type: 
  Country: None (occurrence: None)
  Receive Date: 20091116
  Receipt Date: 20091116
  Transmission Date: 20100525
  Serious: No
  Sender: FDA-Public Use
  Company Number: None

PATIENT
  Age: 55 Year
  Sex: Female
  Weight: 77.1115 kg

DRUGS (2)
  1. THYROGEN [Suspect]
     Indication: WHOLE BODY SCAN
     Dates: start: 20090216, end: 20090216
  2. THYROGEN [Suspect]
     Indication: WHOLE BODY SCAN
     Dates: start: 20090217, end: 20090217

REACTIONS (3)
  - INJECTION SITE REACTION [None]
  - MUSCULAR WEAKNESS [None]
  - PAIN IN EXTREMITY [None]
